FAERS Safety Report 12830328 (Version 1)
Quarter: 2016Q4

REPORT INFORMATION
  Report Type: Spontaneous
  Country: US (occurrence: US)
  Receive Date: 20161007
  Receipt Date: 20161007
  Transmission Date: 20170207
  Serious: Yes (Other)
  Sender: FDA-Public Use
  Company Number: US-SA-2016SA168432

PATIENT
  Age: 51 Year
  Sex: Female

DRUGS (20)
  1. REXULTI [Concomitant]
     Active Substance: BREXPIPRAZOLE
  2. DEPO-PROVERA [Concomitant]
     Active Substance: MEDROXYPROGESTERONE ACETATE
  3. KLOR-CON [Concomitant]
     Active Substance: POTASSIUM CHLORIDE
  4. MELATONIN [Concomitant]
     Active Substance: MELATONIN
  5. EXCEDRIN [Concomitant]
     Active Substance: ACETAMINOPHEN\ASPIRIN\CAFFEINE
     Indication: MIGRAINE
  6. CYMBALTA [Concomitant]
     Active Substance: DULOXETINE HYDROCHLORIDE
  7. LOSARTAN POTASSIUM. [Concomitant]
     Active Substance: LOSARTAN POTASSIUM
  8. TRAMADOL. [Concomitant]
     Active Substance: TRAMADOL
  9. SEROQUEL [Concomitant]
     Active Substance: QUETIAPINE FUMARATE
  10. IRON [Concomitant]
     Active Substance: IRON
  11. ALEVE [Concomitant]
     Active Substance: NAPROXEN SODIUM
  12. AUBAGIO [Suspect]
     Active Substance: TERIFLUNOMIDE
     Indication: MULTIPLE SCLEROSIS
     Route: 048
  13. KLONOPIN [Concomitant]
     Active Substance: CLONAZEPAM
  14. RELAFEN [Concomitant]
     Active Substance: NABUMETONE
  15. VITAMIN B12 [Concomitant]
     Active Substance: CYANOCOBALAMIN
  16. HYDROCHLOROTHIAZIDE/TRIAMTERENE [Concomitant]
  17. LASIX [Concomitant]
     Active Substance: FUROSEMIDE
  18. FLUOXETINE [Concomitant]
     Active Substance: FLUOXETINE HYDROCHLORIDE
  19. GABAPENTIN. [Concomitant]
     Active Substance: GABAPENTIN
  20. BIOTIN [Concomitant]
     Active Substance: BIOTIN

REACTIONS (3)
  - Back pain [Unknown]
  - Multiple sclerosis [Unknown]
  - Pain in extremity [Unknown]
